FAERS Safety Report 7149356-X (Version None)
Quarter: 2010Q4

REPORT INFORMATION
  Report Type: 
  Country: None (occurrence: None)
  Receive Date: 20101209
  Receipt Date: 20101201
  Transmission Date: 20110411
  Serious: Yes (Other)
  Sender: FDA-Public Use
  Company Number: CHNY2010JP00541

PATIENT
  Age: 68 Year
  Sex: Female

DRUGS (1)
  1. GLYSENNID [Suspect]
     Indication: CONSTIPATION
     Route: 048

REACTIONS (1)
  - RASH [None]
